FAERS Safety Report 5044341-6 (Version None)
Quarter: 2006Q3

REPORT INFORMATION
  Report Type: 
  Country: None (occurrence: None)
  Receive Date: 20060706
  Receipt Date: 20060601
  Transmission Date: 20061208
  Serious: Yes (Hospitalization)
  Sender: FDA-Public Use
  Company Number: 2006PK01189

PATIENT
  Age: 80 Year
  Sex: Female
  Weight: 61 kg

DRUGS (2)
  1. TENERETIC MITE [Suspect]
     Indication: ESSENTIAL HYPERTENSION
     Dosage: 50/ 12.5 MG
     Route: 048
     Dates: end: 20050515
  2. AUGMENTIN '125' [Suspect]
     Indication: ERYSIPELAS
     Dosage: 875 /125 MG
     Route: 048
     Dates: start: 20050513, end: 20050515

REACTIONS (8)
  - DIARRHOEA [None]
  - GENERAL PHYSICAL HEALTH DETERIORATION [None]
  - HYPOKALAEMIA [None]
  - HYPONATRAEMIA [None]
  - PYREXIA [None]
  - TACHYCARDIA [None]
  - VAGINAL CANDIDIASIS [None]
  - VOMITING [None]
